FAERS Safety Report 7737641-X (Version None)
Quarter: 2011Q3

REPORT INFORMATION
  Report Type: 
  Country: None (occurrence: None)
  Receive Date: 20110908
  Receipt Date: 20110901
  Transmission Date: 20111222
  Serious: Yes (Hospitalization, Other)
  Sender: FDA-Public Use
  Company Number: JP-PFIZER INC-2011194548

PATIENT
  Age: 42 Year
  Sex: Female
  Weight: 44 kg

DRUGS (3)
  1. ZANTAC [Concomitant]
     Dosage: 150 MG, UNK
  2. AZULFIDINE [Suspect]
     Indication: SPONDYLITIS
     Dosage: 500 MG, 1X/DAY
     Route: 048
     Dates: start: 20110714, end: 20110817
  3. LOXONIN [Concomitant]
     Dosage: 60 MG, UNK

REACTIONS (4)
  - LISTLESS [None]
  - PYREXIA [None]
  - HEPATIC FUNCTION ABNORMAL [None]
  - RASH [None]
